FAERS Safety Report 6046875-4 (Version None)
Quarter: 2009Q1

REPORT INFORMATION
  Report Type: 
  Country: None (occurrence: None)
  Receive Date: 20090122
  Receipt Date: 20090114
  Transmission Date: 20090719
  Serious: Yes (Hospitalization, Other)
  Sender: FDA-Public Use
  Company Number: B0534423A

PATIENT
  Age: 60 Year
  Sex: Female

DRUGS (8)
  1. PAROXETINE HCL [Suspect]
     Indication: DEPRESSION
     Route: 048
  2. FENTANYL [Suspect]
     Route: 040
  3. FENTANYL [Suspect]
  4. FENTANYL [Suspect]
  5. PROPOFOL [Concomitant]
  6. ISOFLURANE [Concomitant]
  7. LEVOTHYROXINE SODIUM [Concomitant]
     Indication: HYPOTHYROIDISM
     Route: 048
  8. ATRACURIUM BESYLATE [Concomitant]

REACTIONS (10)
  - AGITATION [None]
  - CLONUS [None]
  - DISSOCIATION [None]
  - DRUG INTERACTION [None]
  - GLASGOW COMA SCALE ABNORMAL [None]
  - HYPERREFLEXIA [None]
  - HYPERTENSION [None]
  - HYPERTONIA [None]
  - INDIFFERENCE [None]
  - SEROTONIN SYNDROME [None]
